FAERS Safety Report 9124277 (Version 1)
Quarter: 2013Q1

REPORT INFORMATION
  Report Type: Spontaneous
  Country: FR (occurrence: FR)
  Receive Date: 20130116
  Receipt Date: 20130116
  Transmission Date: 20140127
  Serious: Yes (Hospitalization)
  Sender: FDA-Public Use
  Company Number: FR-JNJFOC-20130106929

PATIENT
  Sex: Male

DRUGS (14)
  1. STELARA [Suspect]
     Indication: PSORIATIC ARTHROPATHY
     Route: 058
     Dates: start: 201004
  2. REMICADE [Suspect]
     Indication: PSORIATIC ARTHROPATHY
     Route: 042
     Dates: end: 201112
  3. METHOTREXATE [Suspect]
     Indication: PSORIATIC ARTHROPATHY
     Route: 042
     Dates: start: 201002
  4. METHOTREXATE [Suspect]
     Indication: PSORIATIC ARTHROPATHY
     Route: 042
     Dates: end: 201203
  5. ENBREL [Suspect]
     Indication: PSORIATIC ARTHROPATHY
     Route: 058
     Dates: start: 201002, end: 201203
  6. HUMIRA [Suspect]
     Indication: PSORIATIC ARTHROPATHY
     Route: 058
     Dates: start: 201112, end: 201204
  7. HUMIRA [Suspect]
     Indication: PSORIATIC ARTHROPATHY
     Dosage: WITHDRAWN BETWEEN APR-2012 AND AUG-2012
     Route: 058
     Dates: start: 2012
  8. ACTONEL [Concomitant]
     Route: 065
  9. AMLOR [Concomitant]
     Route: 065
  10. OGAST [Concomitant]
     Route: 065
  11. CACIT D3 [Concomitant]
     Route: 065
  12. DAIVOBET [Concomitant]
     Route: 065
  13. DIPROSONE [Concomitant]
     Route: 065
  14. MACROGOL [Concomitant]
     Route: 065

REACTIONS (2)
  - Renal neoplasm [Not Recovered/Not Resolved]
  - Off label use [Unknown]
